FAERS Safety Report 21806959 (Version 1)
Quarter: 2023Q1

REPORT INFORMATION
  Report Type: Spontaneous
  Country: TR (occurrence: TR)
  Receive Date: 20230102
  Receipt Date: 20230102
  Transmission Date: 20230418
  Serious: Yes (Other)
  Sender: FDA-Public Use
  Company Number: TR-002147023-NVSC2022TR301636

PATIENT
  Sex: Male

DRUGS (1)
  1. AZOPT [Suspect]
     Active Substance: BRINZOLAMIDE
     Indication: Intraocular pressure test abnormal
     Dosage: UNK
     Route: 065

REACTIONS (3)
  - Blindness [Unknown]
  - Ocular hypertension [Unknown]
  - Product supply issue [Unknown]
